FAERS Safety Report 14060366 (Version 1)
Quarter: 2017Q4

REPORT INFORMATION
  Report Type: Report from Study
  Country: US (occurrence: US)
  Receive Date: 20171006
  Receipt Date: 20171006
  Transmission Date: 20180321
  Serious: Yes (Life-Threatening, Hospitalization, Other)
  Sender: FDA-Public Use
  Company Number: US-GILEAD-2017-0296844

PATIENT
  Age: 55 Year
  Sex: Male
  Weight: 118.2 kg

DRUGS (14)
  1. WARFARIN [Concomitant]
     Active Substance: WARFARIN
  2. LIPITOR [Concomitant]
     Active Substance: ATORVASTATIN CALCIUM
  3. EMTRICITABINE/TENOFOVIR DISOPROXIL FUMARATE [Suspect]
     Active Substance: EMTRICITABINE\TENOFOVIR DISOPROXIL FUMARATE
     Indication: HIV INFECTION
     Dosage: 1 DF, QD
     Route: 048
     Dates: start: 20170510
  4. ISORDIL [Concomitant]
     Active Substance: ISOSORBIDE DINITRATE
  5. AMIODARONE [Concomitant]
     Active Substance: AMIODARONE
     Indication: VENTRICULAR TACHYCARDIA
     Dosage: UNK
     Dates: start: 201705
  6. METOLAZONE. [Concomitant]
     Active Substance: METOLAZONE
     Dosage: 5 MG, MWF
  7. ASA [Concomitant]
     Active Substance: ASPIRIN
  8. TIVICAY [Suspect]
     Active Substance: DOLUTEGRAVIR SODIUM
     Indication: HIV INFECTION
     Dosage: 50 MG, QD
     Route: 048
     Dates: start: 20170510
  9. CARVEDILOL. [Concomitant]
     Active Substance: CARVEDILOL
  10. LASIX [Concomitant]
     Active Substance: FUROSEMIDE
     Dosage: 40 MG, MWF
  11. HYDRALAZINE [Concomitant]
     Active Substance: HYDRALAZINE HYDROCHLORIDE
  12. EMTRICITABINE/TENOFOVIR DISOPROXIL FUMARATE [Suspect]
     Active Substance: EMTRICITABINE\TENOFOVIR DISOPROXIL FUMARATE
     Dosage: UNK
     Route: 065
     Dates: end: 20170407
  13. TIVICAY [Suspect]
     Active Substance: DOLUTEGRAVIR SODIUM
     Dosage: UNK
     Route: 065
     Dates: end: 20170407
  14. HEPARIN [Concomitant]
     Active Substance: HEPARIN SODIUM

REACTIONS (1)
  - Cardiac failure acute [Not Recovered/Not Resolved]

NARRATIVE: CASE EVENT DATE: 20170627
